FAERS Safety Report 9345674 (Version 2)
Quarter: 2013Q3

REPORT INFORMATION
  Report Type: Report from Study
  Country: JP (occurrence: JP)
  Receive Date: 20130613
  Receipt Date: 20130828
  Transmission Date: 20140515
  Serious: Yes (Hospitalization, Other)
  Sender: FDA-Public Use
  Company Number: PHHY2013JP059478

PATIENT
  Age: 56 Year
  Sex: Male
  Weight: 55 kg

DRUGS (4)
  1. AFINITOR [Suspect]
     Indication: METASTATIC RENAL CELL CARCINOMA
     Dosage: 10 MG, DAILY
     Route: 048
     Dates: start: 20120420, end: 20120508
  2. AFINITOR [Suspect]
     Dosage: 5 MG, DAILY
     Route: 048
     Dates: start: 20120516, end: 20120807
  3. THYRADIN S [Concomitant]
     Dosage: 75 UG
     Route: 048
  4. FERO-GRADUMET [Concomitant]
     Dosage: 105 MG
     Route: 048
     Dates: start: 20120508, end: 20120820

REACTIONS (11)
  - Lung abscess [Recovered/Resolved]
  - Anaemia [Recovered/Resolved]
  - C-reactive protein increased [Unknown]
  - Stomatitis [Recovering/Resolving]
  - Diabetes mellitus [Recovered/Resolved]
  - Hepatic function abnormal [Recovered/Resolved]
  - Renal impairment [Recovered/Resolved]
  - Pleural effusion [Unknown]
  - Metastatic renal cell carcinoma [Not Recovered/Not Resolved]
  - Malignant neoplasm progression [Not Recovered/Not Resolved]
  - Cough [Unknown]
